FAERS Safety Report 5850170-3 (Version None)
Quarter: 2008Q3

REPORT INFORMATION
  Report Type: 
  Country: None (occurrence: None)
  Receive Date: 20080819
  Receipt Date: 20080801
  Transmission Date: 20090109
  Serious: No
  Sender: FDA-Public Use
  Company Number: US-BOEHRINGER INGELHEIM GMBH, GERMANY-2008-BP-11036BP

PATIENT

DRUGS (11)
  1. MIRAPEX [Suspect]
     Indication: PARKINSONISM
     Dates: end: 20080707
  2. MIRAPEX [Suspect]
     Dates: start: 20080707
  3. ATENOLOL [Concomitant]
  4. TRAMADOL HCL [Concomitant]
  5. LISINOPRIL [Concomitant]
  6. PROTONIX [Concomitant]
  7. ZETIA [Concomitant]
  8. PRAVACHOL [Concomitant]
  9. PAXIL [Concomitant]
  10. TRIAZALOM [Concomitant]
  11. COUMADIN [Concomitant]
     Dates: start: 20071201

REACTIONS (5)
  - CONDITION AGGRAVATED [None]
  - DIARRHOEA [None]
  - FALL [None]
  - HALLUCINATION [None]
  - NAUSEA [None]
